FAERS Safety Report 13877296 (Version 1)
Quarter: 2017Q3

REPORT INFORMATION
  Report Type: Spontaneous
  Country: US (occurrence: None)
  Receive Date: 20170814
  Receipt Date: 20170814
  Transmission Date: 20171127
  Serious: No
  Sender: FDA-Public Use
  Company Number: None

PATIENT
  Age: 70 Year
  Sex: Female
  Weight: 68.49 kg

DRUGS (1)
  1. ADRENAL [Suspect]
     Active Substance: EPINEPHRINE
     Indication: CATARACT OPERATION
     Route: 031
     Dates: start: 20170710, end: 20170801

REACTIONS (3)
  - Intraocular pressure increased [None]
  - Corneal oedema [None]
  - Visual acuity reduced [None]

NARRATIVE: CASE EVENT DATE: 20170801
